FAERS Safety Report 19646973 (Version 1)
Quarter: 2021Q3

REPORT INFORMATION
  Report Type: Report from Study
  Country: NL (occurrence: NL)
  Receive Date: 20210802
  Receipt Date: 20210802
  Transmission Date: 20211014
  Serious: Yes (Hospitalization)
  Sender: FDA-Public Use
  Company Number: NL-JNJFOC-20210748925

PATIENT
  Age: 73 Year
  Sex: Female
  Weight: 89 kg

DRUGS (1)
  1. STELARA [Suspect]
     Active Substance: USTEKINUMAB
     Indication: PSORIASIS
     Route: 058
     Dates: start: 20130405

REACTIONS (3)
  - Vitamin B12 deficiency [Unknown]
  - Laboratory test abnormal [Unknown]
  - Anti-neutrophil cytoplasmic antibody positive vasculitis [Not Recovered/Not Resolved]

NARRATIVE: CASE EVENT DATE: 2021
